FAERS Safety Report 13590779 (Version 1)
Quarter: 2017Q2

REPORT INFORMATION
  Report Type: Spontaneous
  Country: US (occurrence: US)
  Receive Date: 20170527
  Receipt Date: 20170527
  Transmission Date: 20170830
  Serious: Yes (Hospitalization)
  Sender: FDA-Public Use
  Company Number: None

PATIENT
  Age: 50 Year
  Sex: Female
  Weight: 118.2 kg

DRUGS (2)
  1. DOXORUBICIN HYDROCHLORIDE. [Suspect]
     Active Substance: DOXORUBICIN HYDROCHLORIDE
     Dates: end: 20161201
  2. IFOSFAMIDE. [Suspect]
     Active Substance: IFOSFAMIDE
     Dates: end: 20161202

REACTIONS (6)
  - Lymphocyte count decreased [None]
  - Hyperglycaemia [None]
  - Pyrexia [None]
  - Type 2 diabetes mellitus [None]
  - Hyponatraemia [None]
  - Haematotoxicity [None]

NARRATIVE: CASE EVENT DATE: 20161203
